FAERS Safety Report 9955471 (Version 1)
Quarter: 2014Q1

REPORT INFORMATION
  Report Type: Report from Study
  Country: US (occurrence: US)
  Receive Date: 20140304
  Receipt Date: 20140304
  Transmission Date: 20141002
  Serious: No
  Sender: FDA-Public Use
  Company Number: US-ABBVIE-13P-163-1087004-00

PATIENT
  Age: 35 Year
  Sex: Male

DRUGS (5)
  1. HUMIRA [Suspect]
     Indication: COLITIS ULCERATIVE
     Dates: start: 20121111
  2. HUMIRA [Suspect]
     Dates: start: 20121118
  3. HUMIRA [Suspect]
  4. HUMIRA [Suspect]
  5. APRISO [Concomitant]
     Indication: COLITIS ULCERATIVE

REACTIONS (1)
  - Colitis ulcerative [Recovering/Resolving]
